FAERS Safety Report 20268412 (Version 1)
Quarter: 2021Q4

REPORT INFORMATION
  Report Type: Spontaneous
  Country: US (occurrence: US)
  Receive Date: 20211231
  Receipt Date: 20211231
  Transmission Date: 20220303
  Serious: No
  Sender: FDA-Public Use
  Company Number: US-COOPERSURGICAL, INC.-US-2021CPS000193

PATIENT
  Age: 27 Year
  Sex: Female
  Weight: 98.866 kg

DRUGS (3)
  1. PARAGARD T 380A [Suspect]
     Active Substance: COPPER
     Indication: Contraception
     Dosage: UNK
     Route: 015
     Dates: start: 20200903, end: 20210121
  2. BUSPAR [Concomitant]
     Active Substance: BUSPIRONE HYDROCHLORIDE
     Indication: Anxiety
     Dosage: UNK
     Route: 065
  3. FLONASE                            /00972202/ [Concomitant]
     Indication: Nasal congestion
     Dosage: UNK
     Route: 065

REACTIONS (4)
  - Complication associated with device [Recovered/Resolved]
  - Pelvic pain [Unknown]
  - Back pain [Unknown]
  - Device expulsion [Recovered/Resolved]

NARRATIVE: CASE EVENT DATE: 20210118
